FAERS Safety Report 4498552-9 (Version None)
Quarter: 2004Q4

REPORT INFORMATION
  Report Type: 
  Country: None (occurrence: None)
  Receive Date: 20041105
  Receipt Date: 20041020
  Transmission Date: 20050328
  Serious: Yes (Life-Threatening, Hospitalization, Other)
  Sender: FDA-Public Use
  Company Number: 206477

PATIENT
  Age: 52 Year
  Sex: Female

DRUGS (7)
  1. AVONEX [Suspect]
     Indication: MULTIPLE SCLEROSIS
     Dosage: 30 MCG QW IM
     Route: 030
     Dates: start: 20040423, end: 20040801
  2. TYLENOL [Concomitant]
  3. LIPITOR [Concomitant]
  4. GLUCOPHAGE [Concomitant]
  5. TIZANIDINE [Concomitant]
  6. ASPIRIN [Concomitant]
  7. TRIAMTERENE [Concomitant]

REACTIONS (4)
  - FOOD POISONING [None]
  - HEPATIC FAILURE [None]
  - HEPATIC INFECTION [None]
  - LIVER TRANSPLANT [None]
